FAERS Safety Report 20635324 (Version 1)
Quarter: 2022Q1

REPORT INFORMATION
  Report Type: Report from Study
  Country: US (occurrence: US)
  Receive Date: 20220325
  Receipt Date: 20220325
  Transmission Date: 20220424
  Serious: Yes (Hospitalization, Other)
  Sender: FDA-Public Use
  Company Number: US-SA-SAC20220318000563

PATIENT
  Age: 81 Year
  Sex: Female

DRUGS (3)
  1. DRONEDARONE [Suspect]
     Active Substance: DRONEDARONE
  2. DRONEDARONE [Suspect]
     Active Substance: DRONEDARONE
     Dosage: INCREASED FOR TWO WEEKS
  3. DRONEDARONE [Suspect]
     Active Substance: DRONEDARONE
     Dosage: 2 DF, QD

REACTIONS (2)
  - Pneumonia [Unknown]
  - Atrial fibrillation [Unknown]
